FAERS Safety Report 4978739-9 (Version None)
Quarter: 2006Q2

REPORT INFORMATION
  Report Type: 
  Country: None (occurrence: None)
  Receive Date: 20060420
  Receipt Date: 20060206
  Transmission Date: 20061013
  Serious: Yes (Hospitalization)
  Sender: FDA-Public Use
  Company Number: US-MERCK-0602USA01843

PATIENT
  Age: 60 Year
  Sex: Female
  Weight: 84 kg

DRUGS (8)
  1. VIOXX [Suspect]
     Indication: TENDONITIS
     Route: 048
     Dates: start: 20030101
  2. VIOXX [Suspect]
     Indication: ARTHRITIS
     Route: 048
     Dates: start: 20030101
  3. PRINIVIL [Concomitant]
     Route: 065
  4. NIFEDIPINE [Concomitant]
     Route: 065
  5. DETROL [Concomitant]
     Route: 048
  6. ASPIRIN [Concomitant]
     Route: 065
  7. HYDROCHLOROTHIAZIDE AND TRIAMTERENE [Concomitant]
     Route: 065
  8. METFORMIN [Concomitant]
     Indication: DIABETES MELLITUS
     Route: 065

REACTIONS (23)
  - AORTIC CALCIFICATION [None]
  - AORTIC VALVE INCOMPETENCE [None]
  - BURSITIS [None]
  - CEREBROVASCULAR ACCIDENT [None]
  - DIABETES MELLITUS NON-INSULIN-DEPENDENT [None]
  - DILATATION ATRIAL [None]
  - ECZEMA [None]
  - EMOTIONAL DISTRESS [None]
  - GOUT [None]
  - HYPERLIPIDAEMIA [None]
  - HYPERTENSION [None]
  - INCONTINENCE [None]
  - INFLUENZA [None]
  - LACUNAR INFARCTION [None]
  - MITRAL VALVE INCOMPETENCE [None]
  - OSTEOARTHRITIS [None]
  - PERICARDIAL EFFUSION [None]
  - PNEUMONIA [None]
  - PULMONARY HYPERTENSION [None]
  - RHEUMATOID ARTHRITIS [None]
  - TRICUSPID VALVE INCOMPETENCE [None]
  - TRICUSPID VALVE SCLEROSIS [None]
  - VENTRICULAR HYPERTROPHY [None]
